FAERS Safety Report 4442976-2 (Version None)
Quarter: 2004Q3

REPORT INFORMATION
  Report Type: 
  Country: None (occurrence: None)
  Receive Date: 20040728
  Receipt Date: 20040516
  Transmission Date: 20050211
  Serious: No
  Sender: FDA-Public Use
  Company Number: USA040567651

PATIENT
  Age: 41 Year
  Sex: Male

DRUGS (1)
  1. STRATTERA [Suspect]
     Indication: ATTENTION DEFICIT/HYPERACTIVITY DISORDER
     Dosage: 120 MG IN THE MORNING
     Dates: start: 20030501

REACTIONS (2)
  - PRESCRIBED OVERDOSE [None]
  - URINARY HESITATION [None]
